FAERS Safety Report 15909210 (Version 1)
Quarter: 2019Q1

REPORT INFORMATION
  Report Type: Spontaneous
  Country: US (occurrence: US)
  Receive Date: 20190204
  Receipt Date: 20190204
  Transmission Date: 20190417
  Serious: No
  Sender: FDA-Public Use
  Company Number: US-ABBVIE-18K-163-2258688-00

PATIENT
  Sex: Female

DRUGS (7)
  1. OREZINC [Suspect]
     Active Substance: ZINC SULFATE\ZINC SULFATE ANHYDROUS
     Indication: PSORIATIC ARTHROPATHY
     Route: 065
     Dates: start: 201408, end: 201504
  2. REMICADE [Suspect]
     Active Substance: INFLIXIMAB
     Indication: DRUG HYPERSENSITIVITY
     Route: 065
     Dates: start: 201210, end: 201309
  3. METHOTREXATE. [Suspect]
     Active Substance: METHOTREXATE
     Indication: PSORIATIC ARTHROPATHY
     Route: 065
     Dates: start: 201601, end: 201703
  4. HUMIRA [Suspect]
     Active Substance: ADALIMUMAB
     Indication: PSORIATIC ARTHROPATHY
     Route: 058
     Dates: start: 201210, end: 201309
  5. ENBREL [Suspect]
     Active Substance: ETANERCEPT
     Indication: PSORIATIC ARTHROPATHY
     Route: 065
     Dates: start: 201611, end: 201712
  6. COSENTYX [Suspect]
     Active Substance: SECUKINUMAB
     Indication: PSORIATIC ARTHROPATHY
     Route: 065
     Dates: start: 201605, end: 201610
  7. SIMPONI [Suspect]
     Active Substance: GOLIMUMAB
     Indication: PSORIATIC ARTHROPATHY
     Route: 065
     Dates: start: 201312, end: 201408

REACTIONS (3)
  - Abdominal discomfort [Unknown]
  - Drug effect decreased [Unknown]
  - Drug hypersensitivity [Unknown]
